FAERS Safety Report 16953377 (Version 2)
Quarter: 2020Q1

REPORT INFORMATION
  Report Type: Spontaneous
  Country: CA (occurrence: CA)
  Receive Date: 20191023
  Receipt Date: 20200212
  Transmission Date: 20200409
  Serious: Yes (Other)
  Sender: FDA-Public Use
  Company Number: CA-TEVA-2019-CA-1125174

PATIENT
  Age: 11 Year
  Sex: Male

DRUGS (8)
  1. DOXORUBICIN [Suspect]
     Active Substance: DOXORUBICIN
     Indication: EMBRYONAL RHABDOMYOSARCOMA
     Route: 042
  2. DACTINOMYCIN [Suspect]
     Active Substance: DACTINOMYCIN
     Indication: EMBRYONAL RHABDOMYOSARCOMA
     Route: 065
  3. CYCLOPHOSPHAMIDE. [Suspect]
     Active Substance: CYCLOPHOSPHAMIDE
     Route: 048
  4. VINCRISTINE [Suspect]
     Active Substance: VINCRISTINE
     Indication: EMBRYONAL RHABDOMYOSARCOMA
     Route: 065
  5. CYCLOPHOSPHAMIDE. [Suspect]
     Active Substance: CYCLOPHOSPHAMIDE
     Indication: EMBRYONAL RHABDOMYOSARCOMA
     Route: 048
  6. IRINOTECAN [Suspect]
     Active Substance: IRINOTECAN
     Indication: EMBRYONAL RHABDOMYOSARCOMA
     Route: 042
  7. VINORELBINE TARTRATE FOR INJECTION [Suspect]
     Active Substance: VINORELBINE TARTRATE
     Indication: EMBRYONAL RHABDOMYOSARCOMA
     Route: 065
  8. IFOSFAMIDE FOR INJECTION, USP [Suspect]
     Active Substance: IFOSFAMIDE
     Indication: EMBRYONAL RHABDOMYOSARCOMA
     Route: 065

REACTIONS (3)
  - Pulmonary mass [Unknown]
  - Malignant neoplasm progression [Unknown]
  - Embryonal rhabdomyosarcoma [Unknown]
